FAERS Safety Report 9060875 (Version 1)
Quarter: 2013Q1

REPORT INFORMATION
  Report Type: Spontaneous
  Country: US (occurrence: US)
  Receive Date: 20130204
  Receipt Date: 20130204
  Transmission Date: 20140127
  Serious: Yes (Other)
  Sender: FDA-Public Use
  Company Number: US-ELI_LILLY_AND_COMPANY-US201301009648

PATIENT
  Age: 81 None
  Sex: Female

DRUGS (2)
  1. ADCIRCA [Suspect]
  2. LETAIRIS [Concomitant]
     Dosage: UNK
     Route: 048
     Dates: start: 20090408

REACTIONS (2)
  - Loss of consciousness [Unknown]
  - Fall [Unknown]
